FAERS Safety Report 5082174-5 (Version None)
Quarter: 2006Q3

REPORT INFORMATION
  Report Type: 
  Country: None (occurrence: None)
  Receive Date: 20060817
  Receipt Date: 20060807
  Transmission Date: 20061208
  Serious: Yes (Death)
  Sender: FDA-Public Use
  Company Number: KR-JNJFOC-20060705015

PATIENT
  Age: 53 Year
  Sex: Female

DRUGS (14)
  1. ULTRACET [Suspect]
     Indication: PAIN
     Route: 065
  2. HARTMANN SOLN [Concomitant]
     Route: 042
  3. VENTUS [Concomitant]
     Route: 042
  4. GALEXIN [Concomitant]
     Route: 042
  5. DICKNOL [Concomitant]
     Route: 030
  6. DERIBROIN [Concomitant]
     Route: 048
  7. STILLEN [Concomitant]
     Route: 048
  8. UNIZYME [Concomitant]
     Route: 048
  9. AMARYL [Concomitant]
     Route: 048
  10. GLUCOBAY [Concomitant]
     Route: 048
  11. MURUPE [Concomitant]
     Route: 062
  12. HYRUAN PLUS [Concomitant]
     Route: 014
  13. FENAC [Concomitant]
     Route: 048
  14. MACPERAN [Concomitant]
     Route: 042

REACTIONS (1)
  - MULTI-ORGAN FAILURE [None]
